FAERS Safety Report 8367411-3 (Version None)
Quarter: 2012Q2

REPORT INFORMATION
  Report Type: 
  Country: None (occurrence: None)
  Receive Date: 20120517
  Receipt Date: 20120511
  Transmission Date: 20120825
  Serious: Yes (Hospitalization, Other)
  Sender: FDA-Public Use
  Company Number: GB-MERCK-1205USA02284

PATIENT
  Age: 82 Year
  Sex: Male

DRUGS (8)
  1. FOSAMAX [Suspect]
     Indication: OSTEOPOROSIS
     Route: 048
     Dates: end: 20120430
  2. AMILORIDE [Concomitant]
     Route: 065
  3. BENDROFLUMETHIAZIDE [Concomitant]
     Route: 065
  4. ACETAMINOPHEN AND CODEINE PHOSPHATE [Concomitant]
     Route: 065
  5. AMLODIPINE [Concomitant]
     Route: 065
  6. DIGOXIN [Concomitant]
     Route: 065
  7. CALCEOS [Concomitant]
     Route: 065
  8. WARFARIN [Concomitant]
     Indication: ATRIAL FIBRILLATION
     Route: 065

REACTIONS (3)
  - ABDOMINAL PAIN [None]
  - PNEUMOPERITONEUM [None]
  - DUODENAL ULCER PERFORATION [None]
